FAERS Safety Report 25108349 (Version 2)
Quarter: 2025Q2

REPORT INFORMATION
  Report Type: Spontaneous
  Country: PT (occurrence: PT)
  Receive Date: 20250322
  Receipt Date: 20250404
  Transmission Date: 20250717
  Serious: Yes (Other)
  Sender: AUROBINDO
  Company Number: PT-GRUNENTHAL-2025-103871

PATIENT
  Age: 31 Year
  Sex: Male

DRUGS (2)
  1. ZOLMITRIPTAN [Suspect]
     Active Substance: ZOLMITRIPTAN
     Indication: Analgesic therapy
     Route: 065
  2. IBUPROFEN [Concomitant]
     Active Substance: IBUPROFEN
     Indication: Analgesic therapy
     Route: 065

REACTIONS (3)
  - Drug ineffective [Unknown]
  - Self-medication [Unknown]
  - Prescription drug used without a prescription [Unknown]
